FAERS Safety Report 6574173-9 (Version None)
Quarter: 2010Q1

REPORT INFORMATION
  Report Type: 
  Country: None (occurrence: None)
  Receive Date: 20100208
  Receipt Date: 20100119
  Transmission Date: 20100710
  Serious: No
  Sender: FDA-Public Use
  Company Number: US-BAYER-201010491NA

PATIENT
  Age: 77 Year
  Sex: Female

DRUGS (2)
  1. AVELOX [Suspect]
     Indication: LARYNGITIS
     Route: 048
     Dates: start: 20091102, end: 20091110
  2. IMMUNE GLOBULIN INTRAVENOUS (HUMAN) [Concomitant]
     Route: 042

REACTIONS (9)
  - CARDIAC FLUTTER [None]
  - CONTUSION [None]
  - DEPRESSION [None]
  - DIARRHOEA [None]
  - DRUG HYPERSENSITIVITY [None]
  - HYPOPHAGIA [None]
  - NAUSEA [None]
  - TENDON DISORDER [None]
  - TREMOR [None]
